FAERS Safety Report 8049490-6 (Version None)
Quarter: 2012Q1

REPORT INFORMATION
  Report Type: 
  Country: None (occurrence: None)
  Receive Date: 20120117
  Receipt Date: 20120113
  Transmission Date: 20120608
  Serious: Yes (Other)
  Sender: FDA-Public Use
  Company Number: US-PFIZER INC-2012010151

PATIENT
  Sex: Male
  Weight: 106.58 kg

DRUGS (15)
  1. METFORMIN [Concomitant]
     Dosage: 1000 MG, 2X/DAY
  2. GEODON [Concomitant]
     Dosage: 20 MG, UNK
  3. POLYMYXIN B [Concomitant]
     Dosage: 100 MG, 1X/DAY
  4. OMEPRAZOLE [Concomitant]
     Dosage: UNK
  5. TRIHEXYPHENIDYL [Concomitant]
     Dosage: 2 MG, 2X/DAY
  6. ACTOS [Concomitant]
     Dosage: 45 MG, 1X/DAY
  7. CHANTIX [Suspect]
     Dosage: 1 MG, 2X/DAY
     Route: 048
     Dates: start: 20090101
  8. PROPRANOLOL [Concomitant]
     Dosage: 10 MG, 2X/DAY
  9. GLYBURIDE [Concomitant]
     Dosage: 5 MG, 2X/DAY
  10. CHANTIX [Suspect]
     Indication: SMOKING CESSATION THERAPY
     Dosage: 0.5 MG, 1X/DAY
     Route: 048
     Dates: start: 20090101, end: 20090101
  11. DEPAKOTE [Concomitant]
     Dosage: 20 MG, UNK
  12. LOSARTAN POTASSIUM AND HYDROCHLOROTHIAZIDE [Concomitant]
     Dosage: 50/12.5 MG, UNK
  13. JANUVIA [Concomitant]
     Dosage: 1500 MG, 1X/DAY
  14. LIPITOR [Concomitant]
     Dosage: 40 MG, 1X/DAY
  15. PAROXETINE [Concomitant]
     Dosage: 20 MG, 1X/DAY

REACTIONS (5)
  - MENTAL DISORDER [None]
  - CARDIAC DISORDER [None]
  - MALAISE [None]
  - PRURITUS [None]
  - RASH [None]
